FAERS Safety Report 4357588-9 (Version None)
Quarter: 2004Q2

REPORT INFORMATION
  Report Type: 
  Country: None (occurrence: None)
  Receive Date: 20040512
  Receipt Date: 20040512
  Transmission Date: 20050107
  Serious: Yes (Life-Threatening, Hospitalization)
  Sender: FDA-Public Use
  Company Number: None

PATIENT
  Age: 64 Year
  Sex: Male

DRUGS (12)
  1. SIROLIMUS [Suspect]
     Indication: LUNG TRANSPLANT
     Dosage: 2 MG DAILY ORAL
     Route: 048
     Dates: start: 20021201, end: 20040416
  2. NEORAL [Concomitant]
  3. CELLCEPT [Concomitant]
  4. PREDNISONE [Concomitant]
  5. ATOVAQUONE [Concomitant]
  6. OSCAL [Concomitant]
  7. LOVASTATIN [Concomitant]
  8. ADVAIR DISKUS 100/50 [Concomitant]
  9. M.V.I. [Concomitant]
  10. MAGNESIUM OXIDE [Concomitant]
  11. MYCELEX [Concomitant]
  12. FOLIC ACID [Concomitant]

REACTIONS (1)
  - PLATELET COUNT DECREASED [None]
